FAERS Safety Report 24972669 (Version 1)
Quarter: 2025Q1

REPORT INFORMATION
  Report Type: Report from Study
  Country: US (occurrence: US)
  Receive Date: 20250215
  Receipt Date: 20250215
  Transmission Date: 20250409
  Serious: Yes (Other)
  Sender: ABBVIE
  Company Number: US-ABBVIE-6125221

PATIENT
  Age: 59 Year
  Sex: Female

DRUGS (1)
  1. HUMIRA [Suspect]
     Active Substance: ADALIMUMAB
     Indication: Psoriatic arthropathy
     Route: 058
     Dates: start: 20231018, end: 2024

REACTIONS (6)
  - Rotator cuff syndrome [Recovering/Resolving]
  - Rosacea [Not Recovered/Not Resolved]
  - Scab [Unknown]
  - Skin ulcer [Unknown]
  - Therapeutic product ineffective [Unknown]
  - Dry skin [Unknown]

NARRATIVE: CASE EVENT DATE: 20241001
